FAERS Safety Report 5058192-X (Version None)
Quarter: 2006Q3

REPORT INFORMATION
  Report Type: 
  Country: None (occurrence: None)
  Receive Date: 20060721
  Receipt Date: 20060710
  Transmission Date: 20061208
  Serious: Yes (Other)
  Sender: FDA-Public Use
  Company Number: 2006UW14207

PATIENT
  Age: 77 Year
  Sex: Female
  Weight: 81.6 kg

DRUGS (11)
  1. ARIMIDEX [Suspect]
     Indication: BREAST CANCER
     Route: 048
     Dates: start: 20040801
  2. CALCIUM GLUCONATE [Concomitant]
  3. ZESTRIL [Concomitant]
  4. COUMADIN [Concomitant]
  5. ASPIRIN [Concomitant]
  6. METOPROLOL [Concomitant]
  7. LEXAPRO [Concomitant]
  8. HYDROCHLOROTHIAZIDE [Concomitant]
  9. AMBIEN [Concomitant]
  10. MOBIC [Concomitant]
  11. DIGITEK [Concomitant]

REACTIONS (5)
  - ARTHRALGIA [None]
  - BACK PAIN [None]
  - HYSTERECTOMY [None]
  - PAIN IN EXTREMITY [None]
  - STOMACH DISCOMFORT [None]
